FAERS Safety Report 8925913 (Version 1)
Quarter: 2012Q4

REPORT INFORMATION
  Report Type: 
  Country: DE (occurrence: DE)
  Receive Date: 20121126
  Receipt Date: 20121126
  Transmission Date: 20130627
  Serious: Yes (Other)
  Sender: FDA-Public Use
  Company Number: PHHY2012DE091859

PATIENT
  Age: 10 Year
  Sex: Male
  Weight: 54 kg

DRUGS (1)
  1. RITALIN LA [Suspect]
     Indication: ATTENTION DEFICIT/HYPERACTIVITY DISORDER
     Dosage: 30 mg, QD
     Route: 048
     Dates: start: 20101029

REACTIONS (3)
  - Renal tubular acidosis [Unknown]
  - Hypoaldosteronism [Unknown]
  - Hyperkalaemia [Not Recovered/Not Resolved]
